FAERS Safety Report 14939239 (Version 3)
Quarter: 2018Q3

REPORT INFORMATION
  Report Type: Spontaneous
  Country: US (occurrence: US)
  Receive Date: 20180525
  Receipt Date: 20180815
  Transmission Date: 20181010
  Serious: No
  Sender: FDA-Public Use
  Company Number: US-PFIZER INC-2018212618

PATIENT
  Age: 66 Year
  Sex: Male
  Weight: 110 kg

DRUGS (3)
  1. DAPTOMYCIN. [Suspect]
     Active Substance: DAPTOMYCIN
     Indication: OSTEOMYELITIS
     Dosage: 6 MG/KG, EVERY 48 HOURS
     Route: 042
     Dates: start: 20180519
  2. CUBICIN [Suspect]
     Active Substance: DAPTOMYCIN
     Indication: OSTEOMYELITIS
     Dosage: 750 MG, EVERY 48 HOURS
     Route: 042
     Dates: start: 20180519, end: 20180622
  3. ERTAPENEM. [Concomitant]
     Active Substance: ERTAPENEM SODIUM
     Dosage: 1 G, 1X/DAY (EVERY 24 HOURS)
     Route: 042
     Dates: start: 20180518, end: 20180622

REACTIONS (3)
  - Chills [Recovered/Resolved]
  - Pyrexia [Recovered/Resolved]
  - Chills [Not Recovered/Not Resolved]

NARRATIVE: CASE EVENT DATE: 20180519
